FAERS Safety Report 6637750-2 (Version None)
Quarter: 2010Q1

REPORT INFORMATION
  Report Type: 
  Country: None (occurrence: None)
  Receive Date: 20100317
  Receipt Date: 20100310
  Transmission Date: 20100710
  Serious: Yes (Hospitalization, Other)
  Sender: FDA-Public Use
  Company Number: FR-BRISTOL-MYERS SQUIBB COMPANY-15012552

PATIENT
  Age: 64 Year
  Sex: Male

DRUGS (3)
  1. REYATAZ [Suspect]
     Indication: HIV INFECTION
     Route: 048
     Dates: start: 20061016, end: 20100202
  2. NORVIR [Concomitant]
  3. ABACAVIR SULFATE AND LAMIVUDINE [Concomitant]

REACTIONS (4)
  - BACTERAEMIA [None]
  - CYSTITIS [None]
  - NEPHROLITHIASIS [None]
  - URETHRITIS [None]
